FAERS Safety Report 7906903-5 (Version None)
Quarter: 2011Q4

REPORT INFORMATION
  Report Type: 
  Country: None (occurrence: None)
  Receive Date: 20111110
  Receipt Date: 20111107
  Transmission Date: 20120403
  Serious: Yes (Hospitalization)
  Sender: FDA-Public Use
  Company Number: LV-BAYER-2011-107616

PATIENT
  Age: 21 Year
  Sex: Female

DRUGS (1)
  1. ACETYLSALICYLIC ACID SRT [Suspect]
     Dosage: 500 MG, BID
     Route: 048
     Dates: start: 20111102

REACTIONS (1)
  - ANGIOEDEMA [None]
